FAERS Safety Report 25322271 (Version 1)
Quarter: 2025Q2

REPORT INFORMATION
  Report Type: Spontaneous
  Country: IR (occurrence: IR)
  Receive Date: 20250516
  Receipt Date: 20250516
  Transmission Date: 20250716
  Serious: Yes (Other)
  Sender: NOVO NORDISK
  Company Number: IR-NOVOPROD-1427906

PATIENT
  Age: 10 Year
  Sex: Female

DRUGS (2)
  1. NOVORAPID [Suspect]
     Active Substance: INSULIN ASPART
     Indication: Product used for unknown indication
  2. LANTUS [Concomitant]
     Active Substance: INSULIN GLARGINE

REACTIONS (4)
  - Seizure [Unknown]
  - Diabetes mellitus inadequate control [Unknown]
  - Growth retardation [Unknown]
  - Glycosylated haemoglobin increased [Unknown]
